FAERS Safety Report 6432867-X (Version None)
Quarter: 2009Q4

REPORT INFORMATION
  Report Type: 
  Country: None (occurrence: None)
  Receive Date: 20091109
  Receipt Date: 20091030
  Transmission Date: 20100525
  Serious: Yes (Other)
  Sender: FDA-Public Use
  Company Number: B0602366A

PATIENT
  Age: 51 Year
  Sex: Female

DRUGS (2)
  1. TYKERB [Suspect]
     Indication: METASTASIS
     Route: 065
     Dates: start: 20070801
  2. XELODA [Suspect]
     Indication: METASTASIS
     Route: 065
     Dates: start: 20070801

REACTIONS (6)
  - BONE MARROW FAILURE [None]
  - METASTASES TO BONE [None]
  - METASTASES TO CENTRAL NERVOUS SYSTEM [None]
  - METASTASES TO LIVER [None]
  - METASTASES TO LUNG [None]
  - NEUROPATHY PERIPHERAL [None]
